FAERS Safety Report 7171053-5 (Version None)
Quarter: 2010Q4

REPORT INFORMATION
  Report Type: 
  Country: None (occurrence: None)
  Receive Date: 20101217
  Receipt Date: 20101209
  Transmission Date: 20110411
  Serious: Yes (Other)
  Sender: FDA-Public Use
  Company Number: GXKR2010IT04131

PATIENT
  Sex: Female

DRUGS (3)
  1. FILGRASTIM (NGX) [Suspect]
     Indication: GRANULOCYTOPENIA
     Route: 065
  2. RIBAVIRIN [Suspect]
     Indication: HEPATITIS C
     Route: 065
  3. PEGINTERFERON ALFA-2A [Suspect]
     Indication: HEPATITIS C
     Route: 065

REACTIONS (2)
  - GRANULOCYTOPENIA [None]
  - PSORIASIS [None]
